FAERS Safety Report 10860703 (Version 1)
Quarter: 2015Q1

REPORT INFORMATION
  Report Type: Report from Study
  Country: CO (occurrence: CO)
  Receive Date: 20150224
  Receipt Date: 20150224
  Transmission Date: 20150721
  Serious: Yes (Other)
  Sender: FDA-Public Use
  Company Number: CO-ROCHE-1542201

PATIENT
  Sex: Female
  Weight: 60 kg

DRUGS (1)
  1. LUCENTIS [Suspect]
     Active Substance: RANIBIZUMAB
     Indication: VISUAL IMPAIRMENT
     Route: 050
     Dates: start: 20141217

REACTIONS (2)
  - Thrombosis [Not Recovered/Not Resolved]
  - Product use issue [Unknown]
